FAERS Safety Report 14728330 (Version 1)
Quarter: 2018Q2

REPORT INFORMATION
  Report Type: Spontaneous
  Country: US (occurrence: US)
  Receive Date: 20180406
  Receipt Date: 20180406
  Transmission Date: 20180711
  Serious: No
  Sender: FDA-Public Use
  Company Number: US-FRESENIUS MEDICAL CARE RENAL THERAPIES GROUP-FMC-1803-000592

PATIENT
  Age: 45 Year
  Sex: Female

DRUGS (5)
  1. DELFLEX [Suspect]
     Active Substance: CALCIUM CHLORIDE\DEXTROSE\MAGNESIUM CHLORIDE\SODIUM CHLORIDE\SODIUM LACTATE
     Indication: END STAGE RENAL DISEASE
     Route: 033
  2. CARVEDILOL. [Concomitant]
     Active Substance: CARVEDILOL
  3. RALTEGRAVIR. [Concomitant]
     Active Substance: RALTEGRAVIR
  4. VALTREX [Concomitant]
     Active Substance: VALACYCLOVIR HYDROCHLORIDE
  5. ETRAVIRINE [Concomitant]
     Active Substance: ETRAVIRINE

REACTIONS (1)
  - Fluid retention [Unknown]
